FAERS Safety Report 16963770 (Version 1)
Quarter: 2019Q4

REPORT INFORMATION
  Report Type: Report from Study
  Country: None (occurrence: US)
  Receive Date: 20191025
  Receipt Date: 20191025
  Transmission Date: 20200122
  Serious: Yes (Other)
  Sender: FDA-Public Use
  Company Number: US-ABBVIE-19K-163-2973429-00

PATIENT
  Age: 54 Year
  Sex: Female

DRUGS (1)
  1. HUMIRA [Suspect]
     Active Substance: ADALIMUMAB
     Indication: RHEUMATOID ARTHRITIS
     Route: 058
     Dates: start: 201904

REACTIONS (14)
  - Loss of personal independence in daily activities [Unknown]
  - Seasonal allergy [Unknown]
  - Dysstasia [Unknown]
  - Musculoskeletal stiffness [Unknown]
  - Neck pain [Unknown]
  - Mobility decreased [Unknown]
  - Arthralgia [Unknown]
  - Back pain [Unknown]
  - Retinal vascular occlusion [Unknown]
  - Peripheral swelling [Recovering/Resolving]
  - Joint range of motion decreased [Unknown]
  - Eye discharge [Unknown]
  - Tenderness [Unknown]
  - Discomfort [Unknown]

NARRATIVE: CASE EVENT DATE: 2019
